FAERS Safety Report 15342890 (Version 14)
Quarter: 2021Q2

REPORT INFORMATION
  Report Type: Report from Study
  Country: US (occurrence: US)
  Receive Date: 20180903
  Receipt Date: 20210622
  Transmission Date: 20210716
  Serious: Yes (Hospitalization, Other)
  Sender: FDA-Public Use
  Company Number: PHHY2018US087289

PATIENT
  Sex: Female

DRUGS (3)
  1. AFINITOR [Suspect]
     Active Substance: EVEROLIMUS
     Dosage: 10 MG, QD
     Route: 048
     Dates: start: 20190813
  2. AFINITOR [Suspect]
     Active Substance: EVEROLIMUS
     Dosage: 10 MG, QD
     Route: 048
     Dates: start: 20160120
  3. AFINITOR [Suspect]
     Active Substance: EVEROLIMUS
     Indication: ANGIOMYOLIPOMA
     Dosage: 10 MG, QD
     Route: 048
     Dates: start: 20150325

REACTIONS (19)
  - Lung carcinoma cell type unspecified stage III [Unknown]
  - Atrial fibrillation [Unknown]
  - Vitamin D decreased [Unknown]
  - Lymphadenopathy [Unknown]
  - Red cell distribution width decreased [Unknown]
  - Fatigue [Unknown]
  - Platelet count decreased [Recovering/Resolving]
  - Ear infection [Unknown]
  - Chest pain [Unknown]
  - Cough [Unknown]
  - Sinus disorder [Unknown]
  - Neoplasm [Unknown]
  - Pyrexia [Recovered/Resolved]
  - Menstrual disorder [Not Recovered/Not Resolved]
  - Stomatitis [Unknown]
  - Pneumonia [Recovered/Resolved]
  - Lymphocyte percentage decreased [Unknown]
  - Hot flush [Unknown]
  - White blood cell count decreased [Unknown]
